FAERS Safety Report 10758028 (Version 1)
Quarter: 2015Q1

REPORT INFORMATION
  Report Type: Spontaneous
  Country: US (occurrence: US)
  Receive Date: 20150203
  Receipt Date: 20150203
  Transmission Date: 20150721
  Serious: No
  Sender: FDA-Public Use
  Company Number: US-009507513-1501USA010958

PATIENT
  Sex: Female

DRUGS (1)
  1. GRASTEK [Suspect]
     Active Substance: PHLEUM PRATENSE POLLEN
     Indication: ALLERGY PROPHYLAXIS
     Dosage: ONE TABLET ONCE DAILY
     Route: 060
     Dates: start: 20150127

REACTIONS (2)
  - Blood pressure increased [Unknown]
  - Flushing [Unknown]
